FAERS Safety Report 20460477 (Version 1)
Quarter: 2022Q1

REPORT INFORMATION
  Report Type: Report from Study
  Country: US (occurrence: US)
  Receive Date: 20220211
  Receipt Date: 20220211
  Transmission Date: 20220423
  Serious: Yes (Hospitalization)
  Sender: FDA-Public Use
  Company Number: US-JAZZ-2021-US-011875

PATIENT
  Age: 12 Year
  Sex: Male
  Weight: 57.3 kg

DRUGS (12)
  1. ASPARAGINASE ERWINIA CHRYSANTHEMI [Suspect]
     Active Substance: ASPARAGINASE ERWINIA CHRYSANTHEMI
     Indication: Acute lymphocytic leukaemia
     Dosage: 2 MILLILITER, 3XWEEKLY PER 2W COURSE
     Route: 042
     Dates: start: 20210526, end: 20210628
  2. DIPHENHYDRAMINE [Concomitant]
     Active Substance: DIPHENHYDRAMINE
     Dosage: 50 MILLIGRAM, PRN
     Route: 042
     Dates: start: 20210513
  3. DRONABINOL [Concomitant]
     Active Substance: DRONABINOL
     Dosage: 2.5 MILLIGRAM, PRN
     Route: 048
     Dates: start: 20210604
  4. FAMOTIDINE [Concomitant]
     Active Substance: FAMOTIDINE
     Dosage: 20 MILLIGRAM, PRN
     Route: 042
     Dates: start: 20210513
  5. GRANISETRON [Concomitant]
     Active Substance: GRANISETRON
     Dosage: 2 MILLIGRAM, BID
     Route: 042
     Dates: start: 20210604
  6. LORAZEPAM [Concomitant]
     Active Substance: LORAZEPAM
     Dosage: 1 MILLIGRAM, PRN
     Route: 042
     Dates: start: 20210602
  7. LORAZEPAM [Concomitant]
     Active Substance: LORAZEPAM
     Dosage: 1 MILLIGRAM
     Route: 048
     Dates: start: 20210528
  8. ONDANSETRON [Concomitant]
     Active Substance: ONDANSETRON
     Dosage: 8 MILLIGRAM, PRN
     Route: 048
     Dates: start: 20210513
  9. VINCRISTINE [Concomitant]
     Active Substance: VINCRISTINE
     Dosage: 2 MILLIGRAM, SINGLE
     Route: 042
     Dates: start: 20210625, end: 20210625
  10. CYTARABINE [Concomitant]
     Active Substance: CYTARABINE
     Dosage: 120 MILLIGRAM, SINGLE
     Route: 042
     Dates: start: 20210617, end: 20210620
  11. CYCLOPHOSPHAMIDE [Concomitant]
     Active Substance: CYCLOPHOSPHAMIDE
     Dosage: 1600 MILLIGRAM, SINGLE
     Route: 042
     Dates: start: 20210611, end: 20210611
  12. MERCAPTOPURINE [Concomitant]
     Active Substance: MERCAPTOPURINE
     Dosage: 75-100 MILLIGRAM, QD
     Route: 048
     Dates: start: 20210611

REACTIONS (1)
  - Nausea [Recovered/Resolved]

NARRATIVE: CASE EVENT DATE: 20210626
